FAERS Safety Report 5389416-7 (Version None)
Quarter: 2007Q3

REPORT INFORMATION
  Report Type: 
  Country: None (occurrence: None)
  Receive Date: 20070717
  Receipt Date: 20070703
  Transmission Date: 20080115
  Serious: Yes (Other)
  Sender: FDA-Public Use
  Company Number: US-MERCK-0707USA00641

PATIENT
  Age: 66 Year
  Sex: Female

DRUGS (4)
  1. PRINIVIL [Suspect]
     Indication: HYPERTENSION
     Route: 048
  2. HYDRODIURIL [Suspect]
     Indication: HYPERTENSION
     Route: 048
  3. SODIUM PHOSPHATE, DIBASIC [Suspect]
     Indication: BOWEL PREPARATION
     Route: 048
  4. RADIOGRAPHIC CONTRAST MEDIUM (UNSPECIFIED) [Suspect]
     Route: 042

REACTIONS (6)
  - ANAEMIA [None]
  - COLITIS [None]
  - HYPERPARATHYROIDISM [None]
  - HYPERTENSION [None]
  - NEPHROPATHY [None]
  - RENAL TUBULAR NECROSIS [None]
